FAERS Safety Report 5649237-4 (Version None)
Quarter: 2008Q1

REPORT INFORMATION
  Report Type: 
  Country: None (occurrence: None)
  Receive Date: 20080304
  Receipt Date: 20071126
  Transmission Date: 20080703
  Serious: No
  Sender: FDA-Public Use
  Company Number: US-BAYER-200715579NA

PATIENT
  Age: 45 Year
  Sex: Female
  Weight: 70 kg

DRUGS (4)
  1. ULTRAVIST (PHARMACY BULK) [Suspect]
     Indication: COMPUTERISED TOMOGRAM
     Dosage: TOTAL DAILY DOSE: 90 ML  UNIT DOSE: 90 ML
     Route: 042
     Dates: start: 20071121, end: 20071121
  2. DARVOCET [Concomitant]
  3. MOBIC [Concomitant]
  4. IRON [Concomitant]

REACTIONS (3)
  - EYE SWELLING [None]
  - PRURITUS [None]
  - URTICARIA [None]
